FAERS Safety Report 8422115-3 (Version None)
Quarter: 2012Q2

REPORT INFORMATION
  Report Type: 
  Country: None (occurrence: None)
  Receive Date: 20120608
  Receipt Date: 20120530
  Transmission Date: 20120825
  Serious: Yes (Hospitalization)
  Sender: FDA-Public Use
  Company Number: PHHY2012DK036933

PATIENT
  Sex: Female
  Weight: 69 kg

DRUGS (2)
  1. SANDOSTATIN LAR [Suspect]
     Indication: MALIGNANT MESENTERIC NEOPLASM
     Dosage: 20 MG, UNK
     Route: 030
     Dates: start: 20090625, end: 20120322
  2. CHEMOTHERAPEUTICS NOS [Concomitant]
     Dosage: UNK UKN, UNK

REACTIONS (2)
  - CHOLANGITIS [None]
  - PANCREATITIS [None]
